FAERS Safety Report 21332765 (Version 2)
Quarter: 2022Q3

REPORT INFORMATION
  Report Type: Spontaneous
  Country: US (occurrence: US)
  Receive Date: 20220914
  Receipt Date: 20220914
  Transmission Date: 20221027
  Serious: Yes (Hospitalization, Other)
  Sender: FDA-Public Use
  Company Number: US-GILEAD-2022-0597323

PATIENT
  Sex: Male

DRUGS (9)
  1. SOFOSBUVIR\VELPATASVIR [Suspect]
     Active Substance: SOFOSBUVIR\VELPATASVIR
     Indication: Chronic hepatitis C
     Dosage: 1 DOSAGE FORM, QD
     Route: 048
  2. LACTULOSE [Concomitant]
     Active Substance: LACTULOSE
  3. FUROSEMIDE [Concomitant]
     Active Substance: FUROSEMIDE
  4. SPIRONOLACTONE [Concomitant]
     Active Substance: SPIRONOLACTONE
  5. SPIRIVA [Concomitant]
     Active Substance: TIOTROPIUM BROMIDE MONOHYDRATE
  6. ONDANSETRON HYDROCHLORIDE [Concomitant]
     Active Substance: ONDANSETRON HYDROCHLORIDE
  7. PANTOPRAZOLE SODIUM [Concomitant]
     Active Substance: PANTOPRAZOLE SODIUM
  8. PROPRANOLOL HYDROCHLORIDE [Concomitant]
     Active Substance: PROPRANOLOL HYDROCHLORIDE
  9. RIBAVIRIN [Concomitant]
     Active Substance: RIBAVIRIN

REACTIONS (10)
  - Renal disorder [Unknown]
  - Cerebrovascular accident [Unknown]
  - Dysstasia [Unknown]
  - Gait inability [Unknown]
  - Balance disorder [Unknown]
  - Vomiting [Recovering/Resolving]
  - Memory impairment [Unknown]
  - Speech disorder [Unknown]
  - Mobility decreased [Unknown]
  - Product prescribing issue [Unknown]
